FAERS Safety Report 8493733-1 (Version None)
Quarter: 2012Q3

REPORT INFORMATION
  Report Type: 
  Country: None (occurrence: None)
  Receive Date: 20120706
  Receipt Date: 20120627
  Transmission Date: 20120928
  Serious: Yes (Other)
  Sender: FDA-Public Use
  Company Number: PHHY2012US055569

PATIENT
  Age: 41 Year
  Sex: Male

DRUGS (1)
  1. ACETYLSALICYLIC ACID SRT [Suspect]
     Indication: HEADACHE
     Dosage: 7-8 DF, DAILY
     Route: 048
     Dates: start: 19960101, end: 20090101

REACTIONS (5)
  - INCORRECT DOSE ADMINISTERED [None]
  - HAEMORRHAGE [None]
  - INJURY [None]
  - INCORRECT DRUG ADMINISTRATION DURATION [None]
  - BLOOD DISORDER [None]
